FAERS Safety Report 8362543-8 (Version None)
Quarter: 2012Q2

REPORT INFORMATION
  Report Type: 
  Country: None (occurrence: None)
  Receive Date: 20120514
  Receipt Date: 20120430
  Transmission Date: 20120825
  Serious: Yes (Other)
  Sender: FDA-Public Use
  Company Number: DSA_56398_2012

PATIENT
  Age: 75 Year
  Sex: Male

DRUGS (11)
  1. ONDANSETRON [Suspect]
     Indication: PRODUCT USED FOR UNKNOWN INDICATION
     Dosage: (1 DF BID INTRAMUSCULAR)
     Route: 030
     Dates: start: 20120316, end: 20120322
  2. LANTUS [Concomitant]
  3. TIENAM (TIENAM-IMIPENEM) 500 MG (NOT SPECIFIED) [Suspect]
     Indication: PRODUCT USED FOR UNKNOWN INDICATION
     Dosage: (500 MG TID INTRAMUSCULAR)
     Route: 030
     Dates: start: 20120318, end: 20120322
  4. IRBESARTAN [Concomitant]
  5. FLAGYL [Suspect]
     Indication: PRODUCT USED FOR UNKNOWN INDICATION
     Dosage: (500 MG TID ORAL)
     Route: 048
     Dates: start: 20120318, end: 20120322
  6. CALCIPARINE [Suspect]
     Indication: PRODUCT USED FOR UNKNOWN INDICATION
     Dosage: (20000 IU FREQUENCY UNKNOWN SUBCUTANEOUS)
     Route: 058
     Dates: start: 20120316, end: 20120322
  7. BUMETANIDE [Concomitant]
  8. ALFUZOSIN HYDROCHLORIDE [Suspect]
     Indication: PRODUCT USED FOR UNKNOWN INDICATION
     Dosage: (10 MG QD ORAL)
     Route: 048
     Dates: start: 20120318, end: 20120322
  9. ACETAMINOPHEN [Concomitant]
  10. TRAMADOL HYDROCHLORIDE [Suspect]
     Indication: PRODUCT USED FOR UNKNOWN INDICATION
     Dosage: (1 DF BID ORAL)
     Route: 048
     Dates: start: 20120317, end: 20120322
  11. NICARDIPINE HYDROCHLORIDE [Suspect]
     Indication: PRODUCT USED FOR UNKNOWN INDICATION
     Dosage: (20 MG QD ORAL)
     Route: 048
     Dates: start: 20120318

REACTIONS (2)
  - ERYTHEMA [None]
  - PRURITUS [None]
